FAERS Safety Report 6128541-X (Version None)
Quarter: 2009Q1

REPORT INFORMATION
  Report Type: 
  Country: None (occurrence: None)
  Receive Date: 20090323
  Receipt Date: 20090318
  Transmission Date: 20090719
  Serious: Yes (Hospitalization, Other)
  Sender: FDA-Public Use
  Company Number: DE-ABBOTT-08P-062-0467123-00

PATIENT
  Sex: Male
  Weight: 93 kg

DRUGS (7)
  1. HUMIRA [Suspect]
     Indication: RHEUMATOID ARTHRITIS
     Route: 058
     Dates: start: 20080201, end: 20080701
  2. HUMIRA [Suspect]
     Route: 058
     Dates: start: 20060201, end: 20071201
  3. HUMIRA [Suspect]
     Route: 058
     Dates: start: 20080725
  4. METHOTREXATE [Suspect]
     Indication: DRUG USE FOR UNKNOWN INDICATION
  5. LEFLUNOMIDE [Concomitant]
     Indication: RHEUMATOID ARTHRITIS
     Dates: start: 20001101
  6. ENSAID [Concomitant]
     Indication: RHEUMATOID ARTHRITIS
  7. GLUCOCORTICOIDS [Concomitant]
     Indication: RHEUMATOID ARTHRITIS
     Dosage: 7.5MG PER DAY

REACTIONS (2)
  - ARTHRITIS [None]
  - SEPTIC ARTHRITIS STREPTOCOCCAL [None]
